FAERS Safety Report 23032461 (Version 1)
Quarter: 2023Q4

REPORT INFORMATION
  Report Type: Spontaneous
  Country: US (occurrence: None)
  Receive Date: 20231002
  Receipt Date: 20231002
  Transmission Date: 20240110
  Serious: Yes (Hospitalization, Other)
  Sender: FDA-Public Use
  Company Number: None

PATIENT
  Sex: 0

DRUGS (2)
  1. TAMSULOSIN [Suspect]
     Active Substance: TAMSULOSIN
     Indication: Product used for unknown indication
     Dosage: OTHER FREQUENCY : MULTIPLE.;?OTHER ROUTE : ORAL, IV, TOPICAL.;?
     Route: 050
  2. VIAGRA [Suspect]
     Active Substance: SILDENAFIL CITRATE

REACTIONS (3)
  - Abdominal pain [None]
  - Koebner phenomenon [None]
  - Skin lesion [None]
